FAERS Safety Report 15853923 (Version 1)
Quarter: 2019Q1

REPORT INFORMATION
  Report Type: Spontaneous
  Country: US (occurrence: US)
  Receive Date: 20190121
  Receipt Date: 20190121
  Transmission Date: 20190417
  Serious: No
  Sender: FDA-Public Use
  Company Number: None

PATIENT
  Age: 58 Year
  Sex: Male
  Weight: 88.2 kg

DRUGS (15)
  1. BRAFTOVI [Suspect]
     Active Substance: ENCORAFENIB
     Indication: MALIGNANT MELANOMA
     Route: 048
     Dates: start: 20181018, end: 20190121
  2. NASONEX [Concomitant]
     Active Substance: MOMETASONE FUROATE
  3. GARLIC. [Concomitant]
     Active Substance: GARLIC
  4. AQUAPHOR [Concomitant]
     Active Substance: PETROLATUM
  5. VITAMIN C [Concomitant]
     Active Substance: ASCORBIC ACID
  6. VITAMIN D2 [Concomitant]
     Active Substance: ERGOCALCIFEROL
  7. FAMOTIDINE. [Concomitant]
     Active Substance: FAMOTIDINE
  8. ALPRAZOLAM. [Concomitant]
     Active Substance: ALPRAZOLAM
  9. ADVIL [Concomitant]
     Active Substance: IBUPROFEN
  10. AZELASTINE. [Concomitant]
     Active Substance: AZELASTINE HYDROCHLORIDE
  11. BACITRACIN. [Concomitant]
     Active Substance: BACITRACIN
  12. EDARBI [Concomitant]
     Active Substance: AZILSARTAN KAMEDOXOMIL
  13. MEKTOVI [Suspect]
     Active Substance: BINIMETINIB
     Indication: MALIGNANT MELANOMA
     Route: 048
     Dates: start: 20181018, end: 20190121
  14. FLUOXETINE [Concomitant]
     Active Substance: FLUOXETINE HYDROCHLORIDE
  15. PEPTO-BISMOL [Concomitant]
     Active Substance: BISMUTH SUBSALICYLATE

REACTIONS (1)
  - Hepatic enzyme increased [None]
